FAERS Safety Report 9436274 (Version 1)
Quarter: 2013Q3

REPORT INFORMATION
  Report Type: Spontaneous
  Country: US (occurrence: US)
  Receive Date: 20130802
  Receipt Date: 20130802
  Transmission Date: 20140515
  Serious: Yes (Other)
  Sender: FDA-Public Use
  Company Number: US-009507513-1307USA017444

PATIENT
  Age: 48 Year
  Sex: Female
  Weight: 73 kg

DRUGS (12)
  1. DULERA [Suspect]
     Indication: ASTHMA
     Dosage: 2 MICROGRAM, DAILY
     Dates: start: 201301
  2. DULERA [Suspect]
     Indication: CHRONIC OBSTRUCTIVE PULMONARY DISEASE
  3. DIOVAN [Concomitant]
     Indication: HYPERTENSION
     Dosage: 160 MG, DAILY
     Route: 048
     Dates: start: 20050415
  4. ZYRTEC [Concomitant]
     Indication: HYPERSENSITIVITY
     Dosage: 10 MG, DAILY
     Route: 048
     Dates: start: 20050415
  5. PROAIR HFA [Concomitant]
     Indication: ASTHMA
     Dosage: 90 MICROGRAM, DAILY (INHALATION)
     Route: 055
     Dates: start: 20050415
  6. PROAIR HFA [Concomitant]
     Indication: CHRONIC OBSTRUCTIVE PULMONARY DISEASE
  7. SINGULAIR [Concomitant]
     Indication: ASTHMA
     Dosage: 10 MG, DAILY
     Route: 048
     Dates: start: 20050415
  8. NAPROXEN [Concomitant]
     Indication: PSORIATIC ARTHROPATHY
     Dosage: 500 MG, DAILY
     Route: 048
     Dates: start: 20100701
  9. GABAPENTIN [Concomitant]
     Indication: NEURALGIA
     Dosage: 100 MG, ALL THE TIME (24/7)
     Route: 048
     Dates: start: 20121115
  10. GABAPENTIN [Concomitant]
     Indication: PAIN
  11. PREDNISONE [Concomitant]
     Indication: ASTHMA
     Dosage: UNK
  12. PREDNISONE [Concomitant]
     Indication: CHRONIC OBSTRUCTIVE PULMONARY DISEASE

REACTIONS (1)
  - Dysphonia [Unknown]
